FAERS Safety Report 25365829 (Version 1)
Quarter: 2025Q2

REPORT INFORMATION
  Report Type: Spontaneous
  Country: CN (occurrence: CN)
  Receive Date: 20250528
  Receipt Date: 20250528
  Transmission Date: 20250717
  Serious: Yes (Hospitalization)
  Sender: NOVO NORDISK
  Company Number: CN-NOVOPROD-1434686

PATIENT
  Age: 71 Year
  Sex: Female

DRUGS (6)
  1. VICTOZA [Suspect]
     Active Substance: LIRAGLUTIDE
     Indication: Type 2 diabetes mellitus
  2. VICTOZA [Suspect]
     Active Substance: LIRAGLUTIDE
  3. VICTOZA [Suspect]
     Active Substance: LIRAGLUTIDE
  4. VICTOZA [Suspect]
     Active Substance: LIRAGLUTIDE
  5. VICTOZA [Suspect]
     Active Substance: LIRAGLUTIDE
  6. METFORMIN HYDROCHLORIDE [Concomitant]
     Active Substance: METFORMIN HYDROCHLORIDE
     Indication: Type 2 diabetes mellitus

REACTIONS (4)
  - Blood triglycerides increased [Unknown]
  - Nausea [Recovered/Resolved]
  - Decreased appetite [Recovered/Resolved]
  - Off label use [Recovered/Resolved]
